FAERS Safety Report 20099570 (Version 1)
Quarter: 2021Q4

REPORT INFORMATION
  Report Type: Report from Study
  Country: KR (occurrence: KR)
  Receive Date: 20211123
  Receipt Date: 20211123
  Transmission Date: 20220303
  Serious: Yes (Other)
  Sender: FDA-Public Use
  Company Number: KR-KYOWAKIRIN-2021AKK009247

PATIENT
  Sex: Female

DRUGS (45)
  1. FILGRASTIM [Suspect]
     Active Substance: FILGRASTIM
     Indication: Product used for unknown indication
     Dosage: UNK
     Route: 065
     Dates: start: 20171025, end: 20171025
  2. FILGRASTIM [Suspect]
     Active Substance: FILGRASTIM
     Dosage: UNK
     Route: 065
     Dates: start: 20171208, end: 20171208
  3. DOCETAXEL [Concomitant]
     Active Substance: DOCETAXEL
     Indication: Product used for unknown indication
     Dosage: 75 UNK
     Route: 065
     Dates: start: 20171012, end: 20171012
  4. DOCETAXEL [Concomitant]
     Active Substance: DOCETAXEL
     Dosage: 75 UNK
     Route: 065
     Dates: start: 20171104, end: 20171104
  5. DOCETAXEL [Concomitant]
     Active Substance: DOCETAXEL
     Dosage: 75 UNK
     Route: 065
     Dates: start: 20171125, end: 20171125
  6. DOCETAXEL [Concomitant]
     Active Substance: DOCETAXEL
     Dosage: 75 UNK
     Route: 065
     Dates: start: 20171216, end: 20171216
  7. DOCETAXEL [Concomitant]
     Active Substance: DOCETAXEL
     Dosage: 75 UNK
     Route: 065
     Dates: start: 20180106, end: 20180106
  8. DOCETAXEL [Concomitant]
     Active Substance: DOCETAXEL
     Dosage: 75 UNK
     Route: 065
     Dates: start: 20180203, end: 20180203
  9. PERTUZUMAB [Concomitant]
     Active Substance: PERTUZUMAB
     Indication: Product used for unknown indication
     Dosage: 420 MG
     Route: 065
     Dates: start: 20171104, end: 20171104
  10. PERTUZUMAB [Concomitant]
     Active Substance: PERTUZUMAB
     Dosage: 420 MG
     Route: 065
     Dates: start: 20171125, end: 20171125
  11. PERTUZUMAB [Concomitant]
     Active Substance: PERTUZUMAB
     Dosage: 420 MG
     Route: 065
     Dates: start: 20171216, end: 20171216
  12. PERTUZUMAB [Concomitant]
     Active Substance: PERTUZUMAB
     Dosage: 420 MG
     Route: 065
     Dates: start: 20180106, end: 20180106
  13. PERTUZUMAB [Concomitant]
     Active Substance: PERTUZUMAB
     Dosage: 420 MG
     Route: 065
     Dates: start: 20180203, end: 20180203
  14. PERTUZUMAB [Concomitant]
     Active Substance: PERTUZUMAB
     Dosage: 840 MG
     Route: 065
     Dates: start: 20171012, end: 20171012
  15. TRASTUZUMAB [Concomitant]
     Active Substance: TRASTUZUMAB
     Indication: Product used for unknown indication
     Dosage: UNK
     Route: 065
     Dates: start: 20171012, end: 20171012
  16. TRASTUZUMAB [Concomitant]
     Active Substance: TRASTUZUMAB
     Dosage: UNK
     Route: 065
     Dates: start: 20171104, end: 20171104
  17. TRASTUZUMAB [Concomitant]
     Active Substance: TRASTUZUMAB
     Dosage: UNK
     Route: 065
     Dates: start: 20171125, end: 20171125
  18. TRASTUZUMAB [Concomitant]
     Active Substance: TRASTUZUMAB
     Dosage: UNK
     Route: 065
     Dates: start: 20171216, end: 20171216
  19. TRASTUZUMAB [Concomitant]
     Active Substance: TRASTUZUMAB
     Dosage: UNK
     Route: 065
     Dates: start: 20180106, end: 20180106
  20. TRASTUZUMAB [Concomitant]
     Active Substance: TRASTUZUMAB
     Dosage: UNK
     Route: 065
     Dates: start: 20180203, end: 20180203
  21. CARBOPLATIN [Concomitant]
     Active Substance: CARBOPLATIN
     Indication: Product used for unknown indication
     Dosage: 623 MG
     Route: 065
     Dates: start: 20171216, end: 20171216
  22. CARBOPLATIN [Concomitant]
     Active Substance: CARBOPLATIN
     Dosage: 630 MG
     Route: 065
     Dates: start: 20171012, end: 20171012
  23. CARBOPLATIN [Concomitant]
     Active Substance: CARBOPLATIN
     Dosage: 654 MG
     Route: 065
     Dates: start: 20171125, end: 20171125
  24. CARBOPLATIN [Concomitant]
     Active Substance: CARBOPLATIN
     Dosage: 666 MG
     Route: 065
     Dates: start: 20171104, end: 20171104
  25. CARBOPLATIN [Concomitant]
     Active Substance: CARBOPLATIN
     Dosage: 742.5 MG
     Route: 065
     Dates: start: 20180203, end: 20180203
  26. CARBOPLATIN [Concomitant]
     Active Substance: CARBOPLATIN
     Dosage: 750 MILLIGRAM
     Route: 065
     Dates: start: 20180106, end: 20180106
  27. DEXAMETHASONE [Concomitant]
     Active Substance: DEXAMETHASONE
     Indication: Product used for unknown indication
     Dosage: 16 MG
     Route: 065
     Dates: start: 20171013
  28. DEXAMETHASONE [Concomitant]
     Active Substance: DEXAMETHASONE
     Dosage: 10 MILLIGRAM
     Route: 065
     Dates: start: 20171012
  29. MONTMORILLONITE [Concomitant]
     Active Substance: MONTMORILLONITE
     Indication: Product used for unknown indication
     Dosage: 60 UNK
     Route: 065
     Dates: start: 20171105, end: 20171111
  30. MONTMORILLONITE [Concomitant]
     Active Substance: MONTMORILLONITE
     Dosage: 60 UNK
     Route: 065
     Dates: start: 20171208, end: 20171214
  31. DIPHENYLPYRALINE [Concomitant]
     Active Substance: DIPHENYLPYRALINE
     Indication: Product used for unknown indication
     Dosage: 3 MG
     Route: 065
     Dates: start: 20171012
  32. FOLIC ACID [Concomitant]
     Active Substance: FOLIC ACID
     Indication: Product used for unknown indication
     Dosage: 1 MG
     Route: 065
     Dates: start: 20171012, end: 20171013
  33. IRON + VITAMIN B12 [Concomitant]
     Indication: Product used for unknown indication
     Dosage: 1 MG
     Route: 065
     Dates: start: 20171012, end: 20171104
  34. LEVOFLOXACIN [Concomitant]
     Active Substance: LEVOFLOXACIN
     Indication: Product used for unknown indication
     Dosage: 750 MG
     Route: 065
     Dates: start: 20171025, end: 20171031
  35. LOPERAMIDE [Concomitant]
     Active Substance: LOPERAMIDE
     Indication: Product used for unknown indication
     Dosage: 6 MG
     Route: 065
     Dates: start: 20180107, end: 20180113
  36. MAGNESIUM HYDROXIDE [Concomitant]
     Active Substance: MAGNESIUM HYDROXIDE
     Indication: Product used for unknown indication
     Dosage: 1.5 UNK
     Route: 065
     Dates: start: 20171126, end: 20171128
  37. METOCLOPRAMIDE [Concomitant]
     Active Substance: METOCLOPRAMIDE
     Indication: Product used for unknown indication
     Dosage: 15 MILLIGRAM
     Route: 065
     Dates: start: 20171013, end: 20171017
  38. PALONOSETRON [Concomitant]
     Active Substance: PALONOSETRON
     Indication: Product used for unknown indication
     Dosage: 0.25 MG
     Route: 065
     Dates: start: 20171012
  39. PALONOSETRON [Concomitant]
     Active Substance: PALONOSETRON
     Dosage: 0.25 UNK
     Route: 065
     Dates: start: 20171104
  40. ACETAMINOPHEN [Concomitant]
     Active Substance: ACETAMINOPHEN
     Indication: Product used for unknown indication
     Dosage: 1950  MG
     Route: 065
     Dates: start: 20171013
  41. ACETAMINOPHEN [Concomitant]
     Active Substance: ACETAMINOPHEN
     Dosage: 650 MG
     Route: 065
     Dates: start: 20171012
  42. PEGFILGRASTIM [Concomitant]
     Active Substance: PEGFILGRASTIM
     Indication: Product used for unknown indication
     Dosage: 6 MG
     Route: 065
     Dates: start: 20171105, end: 20171105
  43. PEGFILGRASTIM [Concomitant]
     Active Substance: PEGFILGRASTIM
     Dosage: 6 MG
     Route: 065
     Dates: start: 20171217, end: 20171217
  44. PRAMOXINE [Concomitant]
     Active Substance: PRAMOXINE
     Indication: Product used for unknown indication
     Dosage: UNK
     Route: 065
     Dates: start: 20171208
  45. RANITIDINE [Concomitant]
     Active Substance: RANITIDINE
     Indication: Product used for unknown indication
     Dosage: 150 MG
     Route: 065
     Dates: start: 20171013, end: 20171017

REACTIONS (9)
  - Neuropathy peripheral [Recovered/Resolved]
  - Neutrophil count decreased [Recovered/Resolved]
  - Anorectal disorder [Not Recovered/Not Resolved]
  - Diarrhoea [Recovered/Resolved]
  - Diarrhoea [Recovered/Resolved]
  - Diarrhoea [Recovered/Resolved]
  - Neutrophil count decreased [Recovered/Resolved]
  - Nausea [Recovered/Resolved]
  - Nausea [Recovered/Resolved]

NARRATIVE: CASE EVENT DATE: 20171025
